FAERS Safety Report 8594520-6 (Version None)
Quarter: 2012Q3

REPORT INFORMATION
  Report Type: 
  Country: None (occurrence: None)
  Receive Date: 20120801
  Receipt Date: 20120717
  Transmission Date: 20120928
  Serious: Yes (Other)
  Sender: FDA-Public Use
  Company Number: ENTC2012-0333

PATIENT
  Age: 79 Year
  Sex: Female

DRUGS (1)
  1. STALEVO 50 [Suspect]
     Indication: PARKINSON'S DISEASE
     Dosage: STRENGTH: 50/12.5/200 MG ORAL
     Route: 048
     Dates: start: 20100811

REACTIONS (2)
  - LIMB INJURY [None]
  - ACCIDENT [None]
